FAERS Safety Report 18559221 (Version 1)
Quarter: 2020Q4

REPORT INFORMATION
  Report Type: Spontaneous
  Country: US (occurrence: US)
  Receive Date: 20201130
  Receipt Date: 20201130
  Transmission Date: 20210114
  Serious: No
  Sender: FDA-Public Use
  Company Number: US-DSJP-DSU-2020-136387

PATIENT
  Age: 64 Year
  Sex: Male
  Weight: 94.8 kg

DRUGS (2)
  1. ENHERTU [Suspect]
     Active Substance: FAM-TRASTUZUMAB DERUXTECAN-NXKI
     Dosage: 410 MG, ONCE EVERY 3 WK
     Route: 042
     Dates: start: 20201123
  2. ENHERTU [Suspect]
     Active Substance: FAM-TRASTUZUMAB DERUXTECAN-NXKI
     Indication: NEOPLASM MALIGNANT
     Dosage: 508 MG, ONCE EVERY 3 WK
     Route: 042
     Dates: start: 20201020, end: 20201122

REACTIONS (2)
  - Off label use [Not Recovered/Not Resolved]
  - Incorrect dose administered [Not Recovered/Not Resolved]

NARRATIVE: CASE EVENT DATE: 20201020
